FAERS Safety Report 16677083 (Version 1)
Quarter: 2019Q3

REPORT INFORMATION
  Report Type: Report from Study
  Country: None (occurrence: US)
  Receive Date: 20190807
  Receipt Date: 20190807
  Transmission Date: 20191004
  Serious: Yes (Hospitalization)
  Sender: FDA-Public Use
  Company Number: US-ABBVIE-19K-163-2874507-00

PATIENT
  Age: 79 Year
  Sex: Male

DRUGS (2)
  1. ANDROGEL [Suspect]
     Active Substance: TESTOSTERONE
     Indication: PRODUCT USED FOR UNKNOWN INDICATION
     Dosage: 16.2MG/G
     Route: 061
     Dates: end: 20190528
  2. ANDROGEL [Suspect]
     Active Substance: TESTOSTERONE
     Route: 061

REACTIONS (3)
  - Near drowning [Recovered/Resolved]
  - Product physical consistency issue [Unknown]
  - Fall [Recovered/Resolved]

NARRATIVE: CASE EVENT DATE: 20190528
